FAERS Safety Report 12187590 (Version 3)
Quarter: 2016Q3

REPORT INFORMATION
  Report Type: Spontaneous
  Country: US (occurrence: US)
  Receive Date: 20160317
  Receipt Date: 20160913
  Transmission Date: 20161109
  Serious: No
  Sender: FDA-Public Use
  Company Number: US-ASTRAZENECA-2016SE26756

PATIENT
  Age: 24580 Day
  Sex: Female

DRUGS (11)
  1. TAGRISSO [Suspect]
     Active Substance: OSIMERTINIB
     Indication: LUNG CARCINOMA CELL TYPE UNSPECIFIED STAGE 0
     Route: 048
     Dates: start: 20160218
  2. MAGNESIUM [Concomitant]
     Active Substance: MAGNESIUM
  3. PROTEIN POWDER [Concomitant]
  4. OMEGA 3 [Concomitant]
     Active Substance: OMEGA-3 FATTY ACIDS
  5. LORAZEPAM. [Concomitant]
     Active Substance: LORAZEPAM
  6. MIRALAX [Concomitant]
     Active Substance: POLYETHYLENE GLYCOL 3350
  7. VITAMIN C [Concomitant]
     Active Substance: ASCORBIC ACID
  8. ZANTAC [Concomitant]
     Active Substance: RANITIDINE HYDROCHLORIDE
  9. FOLIC ACID. [Concomitant]
     Active Substance: FOLIC ACID
  10. XGEVA [Concomitant]
     Active Substance: DENOSUMAB
  11. KREEL OIL [Concomitant]

REACTIONS (5)
  - Muscle spasms [Unknown]
  - Dry skin [Unknown]
  - Dry eye [Unknown]
  - Dry throat [Unknown]
  - Oropharyngeal pain [Unknown]

NARRATIVE: CASE EVENT DATE: 20160301
